FAERS Safety Report 6444919-9 (Version None)
Quarter: 2009Q4

REPORT INFORMATION
  Report Type: 
  Country: None (occurrence: None)
  Receive Date: 20091118
  Receipt Date: 20091103
  Transmission Date: 20100525
  Serious: Yes (Congenital Anomaly)
  Sender: FDA-Public Use
  Company Number: US-KINGPHARMUSA00001-K200901431

PATIENT

DRUGS (1)
  1. SEPTRA [Suspect]
     Route: 064

REACTIONS (6)
  - ANENCEPHALY [None]
  - CHOANAL ATRESIA [None]
  - COARCTATION OF THE AORTA [None]
  - DIAPHRAGMATIC HERNIA [None]
  - HYPOPLASTIC LEFT HEART SYNDROME [None]
  - LIMB REDUCTION DEFECT [None]
